FAERS Safety Report 25556737 (Version 1)
Quarter: 2025Q3

REPORT INFORMATION
  Report Type: Spontaneous
  Country: US (occurrence: US)
  Receive Date: 20250715
  Receipt Date: 20250715
  Transmission Date: 20251020
  Serious: No
  Sender: NOVO NORDISK
  Company Number: US-NOVOPROD-1372189

PATIENT
  Sex: Female

DRUGS (1)
  1. OZEMPIC [Suspect]
     Active Substance: SEMAGLUTIDE
     Indication: Glucose tolerance impaired
     Dosage: 2 MG DOSE ONCE WEEKLY
     Route: 058

REACTIONS (5)
  - Abdominal rigidity [Unknown]
  - Vomiting [Unknown]
  - Eructation [Unknown]
  - Diarrhoea [Unknown]
  - Product use in unapproved indication [Unknown]
